FAERS Safety Report 4530130-5 (Version None)
Quarter: 2004Q4

REPORT INFORMATION
  Report Type: 
  Country: None (occurrence: None)
  Receive Date: 20041217
  Receipt Date: 20041208
  Transmission Date: 20050328
  Serious: Yes (Other)
  Sender: FDA-Public Use
  Company Number: NZ-JNJFOC-20041202104

PATIENT
  Age: 48 Year
  Sex: Female

DRUGS (3)
  1. RISPERDAL [Suspect]
     Indication: DRUG USE FOR UNKNOWN INDICATION
     Route: 065
  2. CLOMIPRAMINE HCL [Concomitant]
  3. FLUPHANZINE [Concomitant]

REACTIONS (3)
  - DEPRESSION [None]
  - URINARY BLADDER RUPTURE [None]
  - URINARY RETENTION [None]
